FAERS Safety Report 10249224 (Version 2)
Quarter: 2014Q2

REPORT INFORMATION
  Report Type: Spontaneous
  Country: FR (occurrence: FR)
  Receive Date: 20140620
  Receipt Date: 20140623
  Transmission Date: 20141212
  Serious: Yes (Hospitalization, Other)
  Sender: FDA-Public Use
  Company Number: FR-PFIZER INC-2014163529

PATIENT
  Age: 65 Year
  Sex: Female

DRUGS (9)
  1. LYRICA [Suspect]
     Dosage: 150 MG, 2X/DAY
     Route: 048
     Dates: start: 20140226, end: 20140312
  2. SEROPLEX [Suspect]
     Indication: DEPRESSION
     Dosage: 5 MG, 1X/DAY
     Route: 048
     Dates: start: 20140226, end: 20140301
  3. EFFEXOR LP [Concomitant]
     Dosage: UNK
  4. BROMAZEPAM [Concomitant]
  5. SINGULAIR [Concomitant]
     Dosage: UNK
     Dates: end: 20140320
  6. TELFAST [Concomitant]
     Dosage: UNK
     Dates: end: 20140320
  7. ESOMEPRAZOLE [Concomitant]
     Dosage: UNK
     Dates: end: 20140320
  8. RINOCLENIL [Concomitant]
     Dosage: UNK
     Dates: end: 20140320
  9. COLCHICINE [Concomitant]
     Dosage: UNK
     Dates: end: 20140320

REACTIONS (9)
  - Erythema multiforme [Recovered/Resolved]
  - Dyshidrotic eczema [Recovered/Resolved]
  - Eosinophilia [Recovered/Resolved]
  - Face oedema [Recovered/Resolved]
  - Cheilitis [Recovered/Resolved]
  - Vulval oedema [Recovered/Resolved]
  - Vulvovaginal erythema [Recovered/Resolved]
  - Cholestasis [Recovered/Resolved]
  - Lichen sclerosus [Unknown]
